FAERS Safety Report 4896042-2 (Version None)
Quarter: 2005Q4

REPORT INFORMATION
  Report Type: 
  Country: None (occurrence: None)
  Receive Date: 20051220
  Receipt Date: 20050510
  Transmission Date: 20060501
  Serious: Yes (Other)
  Sender: FDA-Public Use
  Company Number: US132690

PATIENT
  Age: 51 Year
  Sex: Male
  Weight: 111.2 kg

DRUGS (10)
  1. ENBREL [Suspect]
     Indication: RHEUMATOID ARTHRITIS
     Dosage: 25 MG, 2 IN 1 WEEKS, SC
     Route: 058
     Dates: start: 20000921, end: 20050315
  2. METHOTREXATE [Concomitant]
  3. LEFLUNOMIDE [Concomitant]
  4. VALDECOXIB [Concomitant]
  5. PREDNISONE [Concomitant]
  6. ESOMEPRAZOLE MAGNESIUM [Concomitant]
  7. AMLODIPINE BESYLATE [Concomitant]
  8. FOLIC ACID [Concomitant]
  9. ALENDRONATE SODIUM [Concomitant]
  10. ETODOLAC [Concomitant]

REACTIONS (2)
  - DEMYELINATION [None]
  - DIZZINESS [None]
